FAERS Safety Report 16937421 (Version 2)
Quarter: 2019Q4

REPORT INFORMATION
  Report Type: Spontaneous
  Country: DE (occurrence: DE)
  Receive Date: 20191018
  Receipt Date: 20191107
  Transmission Date: 20200122
  Serious: Yes (Other)
  Sender: FDA-Public Use
  Company Number: DE-UCBSA-2019043725

PATIENT
  Age: 90 Year
  Sex: Male

DRUGS (1)
  1. LEVETIRACETAM UCB [Suspect]
     Active Substance: LEVETIRACETAM
     Indication: PRODUCT USED FOR UNKNOWN INDICATION
     Dosage: 250 MILLIGRAM, 2X/DAY (BID)
     Dates: start: 2005

REACTIONS (4)
  - Gait disturbance [Unknown]
  - Hypoaesthesia [Unknown]
  - Muscle atrophy [Unknown]
  - Weight decreased [Unknown]
